FAERS Safety Report 9146117 (Version 2)
Quarter: 2013Q2

REPORT INFORMATION
  Report Type: Report from Study
  Country: US (occurrence: US)
  Receive Date: 20130307
  Receipt Date: 20130416
  Transmission Date: 20140414
  Serious: No
  Sender: FDA-Public Use
  Company Number: US-VERTEX PHARMACEUTICALS INC.-2013-003020

PATIENT
  Age: 58 Year
  Sex: Female
  Weight: 113 kg

DRUGS (7)
  1. VX-950 (TELAPREVIR) [Suspect]
     Indication: HEPATITIS C
     Dosage: 750 MG, TID
     Route: 048
     Dates: start: 201302
  2. PEGASYS [Suspect]
     Indication: HEPATITIS C
     Dosage: 180 ?G/0.5ML, QW
     Route: 058
     Dates: start: 201302
  3. RIBASPHERE [Suspect]
     Indication: HEPATITIS C
     Dosage: UNK
     Route: 048
     Dates: start: 20130201
  4. RIBASPHERE [Suspect]
     Dosage: 1 TAB IN AM AND 2 TABS IN PM
     Route: 048
     Dates: start: 201302
  5. JANUVIA [Concomitant]
     Dosage: 1 DF, QD
     Route: 048
  6. DIOVAN HCT [Concomitant]
     Dosage: 1 DF, QD
     Route: 048
  7. GLYBURIDE [Concomitant]
     Dosage: 1 DF, BID
     Route: 048

REACTIONS (7)
  - Neck pain [Unknown]
  - Fatigue [Unknown]
  - Rash [Unknown]
  - Haemoglobin decreased [Unknown]
  - Blood uric acid increased [Unknown]
  - Diarrhoea [Unknown]
  - Pruritus [Unknown]
